FAERS Safety Report 5764915-4 (Version None)
Quarter: 2008Q2

REPORT INFORMATION
  Report Type: 
  Country: None (occurrence: None)
  Receive Date: 20080611
  Receipt Date: 20080603
  Transmission Date: 20081010
  Serious: Yes (Hospitalization, Congenital Anomaly)
  Sender: FDA-Public Use
  Company Number: A0686015B

PATIENT
  Sex: Male
  Weight: 1.9 kg

DRUGS (4)
  1. PAROXETINE HCL [Suspect]
     Indication: ANXIETY
     Dosage: 40MG UNKNOWN
     Dates: start: 20040601
  2. PITOCIN [Concomitant]
     Dates: start: 20050416
  3. MAGNESIUM SULFATE [Concomitant]
     Dates: start: 20050416
  4. LABETALOL HCL [Concomitant]
     Dates: start: 20050419

REACTIONS (7)
  - ATRIAL SEPTAL DEFECT [None]
  - CARDIAC FAILURE CONGESTIVE [None]
  - CHORDEE [None]
  - DRUG EXPOSURE DURING PREGNANCY [None]
  - HYPOSPADIAS [None]
  - PREMATURE BABY [None]
  - VENTRICULAR SEPTAL DEFECT [None]
